FAERS Safety Report 4491927-3 (Version None)
Quarter: 2004Q4

REPORT INFORMATION
  Report Type: 
  Country: None (occurrence: None)
  Receive Date: 20041103
  Receipt Date: 20041022
  Transmission Date: 20050328
  Serious: Yes (Death, Hospitalization)
  Sender: FDA-Public Use
  Company Number: SE-BRISTOL-MYERS SQUIBB COMPANY-12739884

PATIENT
  Age: 89 Year
  Sex: Male

DRUGS (5)
  1. DICLOCIL INJ [Suspect]
     Indication: SEPSIS
     Route: 042
     Dates: start: 20040520, end: 20040527
  2. DALACIN [Suspect]
     Indication: SEPSIS
     Route: 048
     Dates: start: 20040602, end: 20040621
  3. HERACILLIN [Suspect]
     Indication: SEPSIS
     Route: 048
     Dates: start: 20040527, end: 20040602
  4. NEBCINA [Suspect]
     Indication: SEPSIS
     Route: 042
     Dates: start: 20040501, end: 20040501
  5. ZINACEF [Suspect]
     Indication: SEPSIS
     Route: 042
     Dates: start: 20040518, end: 20040520

REACTIONS (2)
  - ADVERSE DRUG REACTION [None]
  - CLOSTRIDIUM COLITIS [None]
